FAERS Safety Report 8436987-X (Version None)
Quarter: 2012Q2

REPORT INFORMATION
  Report Type: 
  Country: None (occurrence: None)
  Receive Date: 20120614
  Receipt Date: 20120606
  Transmission Date: 20120825
  Serious: Yes (Life-Threatening, Other)
  Sender: FDA-Public Use
  Company Number: US-ROXANE LABORATORIES, INC.-2012-RO-01370RO

PATIENT
  Age: 19 Year
  Sex: Male

DRUGS (1)
  1. METHADONE HCL [Suspect]
     Indication: ABDOMINAL PAIN

REACTIONS (2)
  - OVERDOSE [None]
  - HYPOXIC-ISCHAEMIC ENCEPHALOPATHY [None]
